FAERS Safety Report 10609385 (Version 1)
Quarter: 2014Q4

REPORT INFORMATION
  Report Type: Spontaneous
  Country: US (occurrence: US)
  Receive Date: 20141126
  Receipt Date: 20141126
  Transmission Date: 20150529
  Serious: No
  Sender: FDA-Public Use
  Company Number: US-AMGEN-USASP2014088727

PATIENT
  Age: 54 Year
  Sex: Female

DRUGS (1)
  1. ENBREL [Suspect]
     Active Substance: ETANERCEPT
     Indication: PSORIASIS
     Dosage: 50 MG, 2 TIMES/WK
     Route: 065
     Dates: start: 201407

REACTIONS (8)
  - Nausea [Recovered/Resolved]
  - Disorientation [Recovered/Resolved]
  - Injection site pruritus [Unknown]
  - Pyrexia [Recovered/Resolved]
  - Migraine [Recovered/Resolved]
  - Psoriasis [Unknown]
  - Injection site bruising [Unknown]
  - Insomnia [Recovered/Resolved]

NARRATIVE: CASE EVENT DATE: 2014
